FAERS Safety Report 11441419 (Version 1)
Quarter: 2015Q3

REPORT INFORMATION
  Report Type: Report from Study
  Country: AU (occurrence: AU)
  Receive Date: 20150901
  Receipt Date: 20150901
  Transmission Date: 20151125
  Serious: Yes (Hospitalization)
  Sender: FDA-Public Use
  Company Number: AU-UNITED THERAPEUTICS-UTC-000152

PATIENT
  Age: 61 Year
  Sex: Female
  Weight: 67 kg

DRUGS (19)
  1. OESTROGENS/MEDROXYPROGEST [Concomitant]
     Dosage: 1 IN MORNING
  2. SERTRALINE [Concomitant]
     Active Substance: SERTRALINE HYDROCHLORIDE
     Dosage: 1 IN MORNING
  3. UT-15C SR [Suspect]
     Active Substance: TREPROSTINIL DIOLAMINE
     Indication: PULMONARY ARTERIAL HYPERTENSION
     Dosage: 2.0 MG AM, AND 1.5 MG PM
     Route: 048
     Dates: start: 20071108, end: 20080104
  4. CALCIUM CARBONATE. [Concomitant]
     Active Substance: CALCIUM CARBONATE
     Dosage: 1 IN MORNING
  5. ESOMEPRAZOLE [Concomitant]
     Active Substance: ESOMEPRAZOLE
     Dosage: 1 AT NIGHT
  6. PREMARIN [Concomitant]
     Active Substance: ESTROGENS, CONJUGATED
     Indication: HORMONE REPLACEMENT THERAPY
  7. FISH OIL [Concomitant]
     Active Substance: FISH OIL
     Dosage: 2 IN THE MORNING
  8. GABAPENTIN. [Concomitant]
     Active Substance: GABAPENTIN
  9. GLUCOSAMINE [Concomitant]
     Active Substance: GLUCOSAMINE
     Dosage: MORNING
  10. DILTIAZEM [Concomitant]
     Active Substance: DILTIAZEM
     Dosage: 1 IN MORNING
  11. IRBESARTAN. [Concomitant]
     Active Substance: IRBESARTAN
     Dosage: 1 IN MORNING
  12. OMEPRAZOLE. [Concomitant]
     Active Substance: OMEPRAZOLE
     Dosage: 1 MIDDAY
  13. PARACETAMOL [Concomitant]
     Active Substance: ACETAMINOPHEN
  14. FRUSEMIDE [Concomitant]
     Active Substance: FUROSEMIDE
     Dosage: 2 IN MORNING
  15. POTASSIUM CHLOR SR [Concomitant]
  16. NYSTATIN SUSPENSION [Concomitant]
     Active Substance: NYSTATIN
  17. SILDENAFIL. [Concomitant]
     Active Substance: SILDENAFIL
     Indication: PULMONARY ARTERIAL HYPERTENSION
  18. BOSENTAN [Concomitant]
     Active Substance: BOSENTAN
     Indication: PULMONARY ARTERIAL HYPERTENSION
  19. PAMIDRONATE SOD INJ [Concomitant]

REACTIONS (1)
  - Lower respiratory tract infection [Recovered/Resolved]

NARRATIVE: CASE EVENT DATE: 20080101
